FAERS Safety Report 10049006 (Version 2)
Quarter: 2014Q2

REPORT INFORMATION
  Report Type: Spontaneous
  Country: US (occurrence: US)
  Receive Date: 20140331
  Receipt Date: 20140407
  Transmission Date: 20141212
  Serious: No
  Sender: FDA-Public Use
  Company Number: US-GILEAD-2014-0098337

PATIENT
  Age: 57 Year
  Sex: Female

DRUGS (4)
  1. LETAIRIS [Suspect]
     Indication: PRODUCT USED FOR UNKNOWN INDICATION
     Dosage: 10 MG, QD
     Route: 065
     Dates: start: 20121211
  2. TYVASO [Suspect]
     Indication: PRODUCT USED FOR UNKNOWN INDICATION
     Dosage: UNK
     Route: 055
  3. TYVASO [Suspect]
     Dosage: 6 DF, UNK
     Route: 055
     Dates: start: 20140326
  4. REVATIO [Concomitant]
     Indication: PRODUCT USED FOR UNKNOWN INDICATION

REACTIONS (3)
  - Wheezing [Not Recovered/Not Resolved]
  - Cough [Not Recovered/Not Resolved]
  - Dyspnoea [Unknown]
